FAERS Safety Report 5978841-9 (Version None)
Quarter: 2008Q4

REPORT INFORMATION
  Report Type: 
  Country: None (occurrence: None)
  Receive Date: 20081204
  Receipt Date: 20081126
  Transmission Date: 20090506
  Serious: Yes (Hospitalization)
  Sender: FDA-Public Use
  Company Number: PHHY2008CA30093

PATIENT
  Sex: Male

DRUGS (1)
  1. ZOMETA [Suspect]
     Indication: PROSTATE CANCER
     Dosage: 3.5 MG EVERY 4 WEEKS
     Route: 042
     Dates: start: 20080427

REACTIONS (2)
  - CHEST PAIN [None]
  - PULMONARY EMBOLISM [None]
